FAERS Safety Report 15772752 (Version 1)
Quarter: 2018Q4

REPORT INFORMATION
  Report Type: Spontaneous
  Country: DE (occurrence: DE)
  Receive Date: 20181228
  Receipt Date: 20181228
  Transmission Date: 20190205
  Serious: Yes (Other)
  Sender: FDA-Public Use
  Company Number: DE-CELGENEUS-DEU-20180600022

PATIENT
  Age: 59 Year
  Sex: Male

DRUGS (1)
  1. OTEZLA [Suspect]
     Active Substance: APREMILAST
     Indication: PSORIATIC ARTHROPATHY
     Route: 048
     Dates: start: 2017, end: 201812

REACTIONS (9)
  - Adverse event [Unknown]
  - Dermatitis [Not Recovered/Not Resolved]
  - Night sweats [Recovered/Resolved]
  - Functional gastrointestinal disorder [Unknown]
  - Headache [Unknown]
  - Weight decreased [Unknown]
  - Hypermetabolism [Unknown]
  - Lip swelling [Unknown]
  - Rash pustular [Not Recovered/Not Resolved]

NARRATIVE: CASE EVENT DATE: 2017
